FAERS Safety Report 18203209 (Version 1)
Quarter: 2020Q3

REPORT INFORMATION
  Report Type: Spontaneous
  Country: US (occurrence: US)
  Receive Date: 20200827
  Receipt Date: 20200827
  Transmission Date: 20201103
  Serious: No
  Sender: FDA-Public Use
  Company Number: US-MYLANLABS-2020M1072071

PATIENT
  Sex: Male

DRUGS (2)
  1. WIXELA INHUB [Suspect]
     Active Substance: FLUTICASONE PROPIONATE\SALMETEROL XINAFOATE
     Indication: ASTHMA
     Dosage: 250/50 MCG, QD (ONE TIME A DAY), 1 PUFF ONCE A DAY
     Route: 055
  2. PROAIR HFA [Concomitant]
     Active Substance: ALBUTEROL SULFATE
     Dosage: UNK

REACTIONS (3)
  - Product quality issue [Unknown]
  - Device issue [Unknown]
  - Off label use [Not Recovered/Not Resolved]
